FAERS Safety Report 16766070 (Version 2)
Quarter: 2019Q3

REPORT INFORMATION
  Report Type: Spontaneous
  Country: US (occurrence: US)
  Receive Date: 20190903
  Receipt Date: 20190913
  Transmission Date: 20191005
  Serious: No
  Sender: FDA-Public Use
  Company Number: US-BAYER-2019-160675

PATIENT
  Age: 69 Year
  Sex: Female
  Weight: 69.39 kg

DRUGS (3)
  1. MIRALAX [Suspect]
     Active Substance: POLYETHYLENE GLYCOL 3350
     Indication: GASTROINTESTINAL DISORDER
     Dosage: 1 UNK
  2. FIBER [Concomitant]
     Active Substance: PSYLLIUM HUSK
     Dosage: UNK
  3. MIRALAX [Suspect]
     Active Substance: POLYETHYLENE GLYCOL 3350
     Indication: GASTROINTESTINAL DISORDER
     Dosage: 1 DF (UP TO THE WHITE SECTION IN CAP)
     Route: 048
     Dates: start: 20190808, end: 20190808

REACTIONS (3)
  - Bowel movement irregularity [Unknown]
  - Product container seal issue [None]
  - Product contamination physical [None]
